FAERS Safety Report 17967710 (Version 1)
Quarter: 2020Q2

REPORT INFORMATION
  Report Type: Spontaneous
  Country: US (occurrence: US)
  Receive Date: 20200630
  Receipt Date: 20200630
  Transmission Date: 20200714
  Serious: Yes (Other)
  Sender: FDA-Public Use
  Company Number: None

PATIENT
  Age: 3 Year
  Sex: Female
  Weight: 16.7 kg

DRUGS (3)
  1. CRIZOTINIB ORAL LIQUID [Suspect]
     Active Substance: CRIZOTINIB
     Indication: LANGERHANS^ CELL HISTIOCYTOSIS
     Route: 048
     Dates: start: 20200625, end: 20200628
  2. CRIZOTINIB ORAL LIQUID [Suspect]
     Active Substance: CRIZOTINIB
     Indication: ANAPLASTIC LYMPHOMA KINASE GENE MUTATION
     Route: 048
     Dates: start: 20200625, end: 20200628
  3. CLOFARABINE. [Concomitant]
     Active Substance: CLOFARABINE
     Dates: start: 20200625, end: 20200629

REACTIONS (2)
  - Therapy interrupted [None]
  - Rash [None]

NARRATIVE: CASE EVENT DATE: 20200628
